FAERS Safety Report 4511275-2 (Version None)
Quarter: 2004Q4

REPORT INFORMATION
  Report Type: 
  Country: None (occurrence: None)
  Receive Date: 20041123
  Receipt Date: 20041123
  Transmission Date: 20050328
  Serious: No
  Sender: FDA-Public Use
  Company Number: None

PATIENT
  Sex: Female

DRUGS (1)
  1. CORICIDIN D (CHLORPHENIRAMINE/PHENYLPROPANOLAMINE/AS TABLETS [Suspect]
     Indication: NASOPHARYNGITIS
     Dates: start: 19951101

REACTIONS (3)
  - CEREBROVASCULAR ACCIDENT [None]
  - MENTAL DISORDER [None]
  - PAIN [None]
